FAERS Safety Report 25010482 (Version 1)
Quarter: 2025Q1

REPORT INFORMATION
  Report Type: Spontaneous
  Country: CN (occurrence: CN)
  Receive Date: 20250225
  Receipt Date: 20250225
  Transmission Date: 20250408
  Serious: Yes (Other)
  Sender: BRISTOL-MYERS SQUIBB COMPANY
  Company Number: CN-MLMSERVICE-20250213-PI402846-00255-1

PATIENT
  Age: 60 Year
  Sex: Female

DRUGS (10)
  1. PACLITAXEL [Suspect]
     Active Substance: PACLITAXEL
     Indication: Lung adenocarcinoma
     Dates: start: 20220824
  2. PACLITAXEL [Suspect]
     Active Substance: PACLITAXEL
     Indication: Metastases to adrenals
  3. PACLITAXEL [Suspect]
     Active Substance: PACLITAXEL
     Indication: Metastases to spine
  4. PACLITAXEL [Suspect]
     Active Substance: PACLITAXEL
     Indication: Metastases to lymph nodes
  5. PACLITAXEL [Suspect]
     Active Substance: PACLITAXEL
     Indication: Metastases to the mediastinum
  6. SINTILIMAB [Suspect]
     Active Substance: SINTILIMAB
     Indication: Lung adenocarcinoma
     Dates: start: 20220824
  7. SINTILIMAB [Suspect]
     Active Substance: SINTILIMAB
     Indication: Metastases to adrenals
  8. SINTILIMAB [Suspect]
     Active Substance: SINTILIMAB
     Indication: Metastases to bone
  9. SINTILIMAB [Suspect]
     Active Substance: SINTILIMAB
     Indication: Metastases to lymph nodes
  10. SINTILIMAB [Suspect]
     Active Substance: SINTILIMAB
     Indication: Metastases to the mediastinum

REACTIONS (3)
  - Hyponatraemia [Recovering/Resolving]
  - Myelosuppression [Recovering/Resolving]
  - Hypothyroidism [Recovering/Resolving]

NARRATIVE: CASE EVENT DATE: 20220801
